FAERS Safety Report 6191045-2 (Version None)
Quarter: 2009Q2

REPORT INFORMATION
  Report Type: 
  Country: None (occurrence: None)
  Receive Date: 20090513
  Receipt Date: 20090427
  Transmission Date: 20091009
  Serious: Yes (Hospitalization)
  Sender: FDA-Public Use
  Company Number: ADE# 09-171DPR

PATIENT
  Age: 61 Year
  Sex: Male

DRUGS (7)
  1. DIGOXIN [Suspect]
     Indication: HEART RATE IRREGULAR
     Dosage: TWICE DAILY
     Dates: start: 20030101, end: 20080101
  2. NORVASC [Concomitant]
  3. ACCUPRIL [Concomitant]
  4. GLUCOTROL XL [Concomitant]
  5. LEVOTHYROXINE SODIUM [Concomitant]
  6. HYDROCHLOROTHIAZIDE [Concomitant]
  7. IBUPROFEN [Concomitant]

REACTIONS (6)
  - CARDIAC FLUTTER [None]
  - CARDIOACTIVE DRUG LEVEL DECREASED [None]
  - CHEST PAIN [None]
  - DYSPNOEA [None]
  - HEART RATE IRREGULAR [None]
  - PAIN IN EXTREMITY [None]
